FAERS Safety Report 13302287 (Version 3)
Quarter: 2017Q2

REPORT INFORMATION
  Report Type: Report from Study
  Country: CA (occurrence: CA)
  Receive Date: 20170307
  Receipt Date: 20170605
  Transmission Date: 20170830
  Serious: Yes (Hospitalization, Other)
  Sender: FDA-Public Use
  Company Number: CA-BRISTOL-MYERS SQUIBB COMPANY-BMS-2017-018893

PATIENT
  Age: 64 Year
  Sex: Male

DRUGS (1)
  1. ABATACEPT [Suspect]
     Active Substance: ABATACEPT
     Indication: RHEUMATOID ARTHRITIS
     Dosage: UNK, Q4WK
     Route: 065
     Dates: start: 20070514

REACTIONS (4)
  - Pyrexia [Unknown]
  - Infection [Unknown]
  - Aortic stenosis [Recovering/Resolving]
  - Aortic valve replacement [Unknown]

NARRATIVE: CASE EVENT DATE: 20170504
